FAERS Safety Report 7374539-3 (Version None)
Quarter: 2011Q1

REPORT INFORMATION
  Report Type: 
  Country: None (occurrence: None)
  Receive Date: 20110325
  Receipt Date: 20100226
  Transmission Date: 20110831
  Serious: No
  Sender: FDA-Public Use
  Company Number: US-MYLANLABS-2010S1003400

PATIENT
  Sex: Female

DRUGS (7)
  1. PREDNISONE [Concomitant]
     Indication: RHEUMATOID ARTHRITIS
     Route: 048
  2. FENTANYL-100 [Suspect]
     Indication: RHEUMATOID ARTHRITIS
     Dosage: Q72HR
     Route: 062
  3. LEXAPRO [Concomitant]
     Indication: DEPRESSION
     Route: 048
  4. DYAZIDE [Concomitant]
     Indication: HYPERTENSION
     Dosage: 37.5MG/25MG
     Route: 048
  5. SYMBICORT [Concomitant]
  6. NEXIUM [Concomitant]
     Indication: GASTROOESOPHAGEAL REFLUX DISEASE
     Route: 048
  7. METHOTREXATE [Concomitant]
     Indication: RHEUMATOID ARTHRITIS
     Route: 048

REACTIONS (4)
  - TREMOR [None]
  - PARANOIA [None]
  - RESTLESSNESS [None]
  - INSOMNIA [None]
